FAERS Safety Report 5142865-4 (Version None)
Quarter: 2006Q4

REPORT INFORMATION
  Report Type: 
  Country: None (occurrence: None)
  Receive Date: 20061102
  Receipt Date: 20061023
  Transmission Date: 20070319
  Serious: Yes (Death, Life-Threatening, Hospitalization, Other)
  Sender: FDA-Public Use
  Company Number: ES-ABBOTT-06P-144-0347692-00

PATIENT
  Sex: Male
  Weight: 55.8 kg

DRUGS (6)
  1. ZEMPLAR [Suspect]
     Indication: HYPERPARATHYROIDISM SECONDARY
     Route: 042
     Dates: end: 20061009
  2. CARBEDILOL [Concomitant]
     Indication: ISCHAEMIC CARDIOMYOPATHY
     Route: 048
  3. APROBEL [Concomitant]
     Indication: HYPERTENSION
     Route: 048
  4. GLYCERYL TRINITRATE [Concomitant]
     Indication: ISCHAEMIC CARDIOMYOPATHY
     Route: 062
  5. SIMVASTATIN [Concomitant]
     Indication: HYPERCHOLESTEROLAEMIA
     Route: 048
     Dates: start: 20060301
  6. PENTOXIFYLLINE [Concomitant]
     Indication: ARTERIOPATHIC DISEASE
     Dates: start: 20050401

REACTIONS (5)
  - ATRIAL FIBRILLATION [None]
  - CARDIO-RESPIRATORY ARREST [None]
  - HYPOGLYCAEMIA [None]
  - ISCHAEMIC STROKE [None]
  - PNEUMONIA [None]
